FAERS Safety Report 21530683 (Version 3)
Quarter: 2022Q4

REPORT INFORMATION
  Report Type: Spontaneous
  Country: US (occurrence: None)
  Receive Date: 20221031
  Receipt Date: 20221220
  Transmission Date: 20230112
  Serious: Yes (Other)
  Sender: FDA-Public Use
  Company Number: 2022A344044

PATIENT
  Age: 72 Year
  Sex: Female
  Weight: 67.1 kg

DRUGS (8)
  1. FASENRA [Suspect]
     Active Substance: BENRALIZUMAB
     Indication: Asthma
     Route: 058
  2. FASENRA [Suspect]
     Active Substance: BENRALIZUMAB
     Indication: Chronic obstructive pulmonary disease
     Route: 058
  3. TEZSPIRE [Suspect]
     Active Substance: TEZEPELUMAB-EKKO
     Indication: Asthma
     Dosage: ONCE/SINGLE ADMINISTRATION
     Route: 058
     Dates: start: 20220510, end: 20220511
  4. OMEPRAZOLE [Suspect]
     Active Substance: OMEPRAZOLE
     Indication: Dyspnoea
     Dosage: 40.0MG UNKNOWN
     Route: 048
     Dates: start: 20220819
  5. OMEPRAZOLE [Suspect]
     Active Substance: OMEPRAZOLE
     Indication: Dyspepsia
     Dosage: 40.0MG UNKNOWN
     Route: 048
     Dates: start: 20220819
  6. ROSUVASTATIN [Suspect]
     Active Substance: ROSUVASTATIN
     Indication: Blood cholesterol increased
     Route: 048
  7. PREDNISONE [Suspect]
     Active Substance: PREDNISONE
     Indication: Dyspnoea
     Dosage: 60 MG FOR FOUR TO FIVE WEEKS60.0MG UNKNOWN
     Route: 065
  8. BENZONATATE [Concomitant]
     Active Substance: BENZONATATE

REACTIONS (8)
  - Cough [Recovering/Resolving]
  - Dyspnoea [Not Recovered/Not Resolved]
  - Chest discomfort [Unknown]
  - Gait disturbance [Unknown]
  - Asthma [Not Recovered/Not Resolved]
  - Weight increased [Not Recovered/Not Resolved]
  - Drug hypersensitivity [Unknown]
  - Aspergillus infection [Unknown]

NARRATIVE: CASE EVENT DATE: 20220101
